FAERS Safety Report 4522197-5 (Version None)
Quarter: 2004Q4

REPORT INFORMATION
  Report Type: 
  Country: None (occurrence: None)
  Receive Date: 20041206
  Receipt Date: 20041122
  Transmission Date: 20050328
  Serious: Yes (Death)
  Sender: FDA-Public Use
  Company Number: HQWYE644223NOV04

PATIENT
  Age: 38 Year
  Sex: Female

DRUGS (15)
  1. EFFEXOR [Suspect]
     Indication: DEPRESSION
  2. DURAGESIC [Suspect]
     Indication: PAIN
  3. NEURONTIN [Suspect]
     Indication: PAIN
  4. ATENOLOL [Concomitant]
  5. LORAZEPAM [Concomitant]
  6. FLEXERIL [Concomitant]
  7. BEXTRA [Concomitant]
  8. TEMAZEPAM [Concomitant]
  9. TOPAMAX [Concomitant]
  10. AMBIEN [Concomitant]
  11. WELLBUTRIN XL (BUPROPION HYDROCHLORIDE) [Concomitant]
  12. DIAZEPAM [Concomitant]
  13. OXYCONTIN [Concomitant]
  14. CLONAZEPAM [Concomitant]
  15. MORPHINE [Concomitant]

REACTIONS (37)
  - APNOEA [None]
  - ARTHRALGIA [None]
  - ARTHROPATHY [None]
  - ASPIRATION [None]
  - ASTHENIA [None]
  - BLOOD URINE PRESENT [None]
  - CARDIO-RESPIRATORY ARREST [None]
  - CHILLS [None]
  - COMA [None]
  - COMPLETED SUICIDE [None]
  - DIZZINESS [None]
  - DRUG TOXICITY [None]
  - FALL [None]
  - GASTRIC PERFORATION [None]
  - HAEMATEMESIS [None]
  - HEADACHE [None]
  - HYPOTENSION [None]
  - INJURY [None]
  - INSOMNIA [None]
  - INTENTIONAL OVERDOSE [None]
  - INTERVERTEBRAL DISC DISORDER [None]
  - LIVIDITY [None]
  - MEDICATION ERROR [None]
  - MUSCLE SPASMS [None]
  - NECK PAIN [None]
  - OVERDOSE [None]
  - PAIN IN EXTREMITY [None]
  - PERIPHERAL COLDNESS [None]
  - PETECHIAE [None]
  - PHARMACEUTICAL PRODUCT COMPLAINT [None]
  - POSTOPERATIVE INFECTION [None]
  - PRECANCEROUS CELLS PRESENT [None]
  - PULMONARY CONGESTION [None]
  - PULSE ABSENT [None]
  - RASH [None]
  - SMEAR CERVIX ABNORMAL [None]
  - ULNAR NERVE PALSY [None]
